FAERS Safety Report 10207721 (Version 1)
Quarter: 2014Q2

REPORT INFORMATION
  Report Type: Spontaneous
  Country: US (occurrence: US)
  Receive Date: 20140530
  Receipt Date: 20140530
  Transmission Date: 20141212
  Serious: No
  Sender: FDA-Public Use
  Company Number: US-GLAXOSMITHKLINE-A1056196A

PATIENT
  Age: 57 Year
  Sex: Male

DRUGS (2)
  1. VENTOLIN HFA [Suspect]
     Indication: ASTHMA
     Dosage: 2PUFF THREE TIMES PER DAY
     Route: 055
     Dates: start: 2010
  2. BLOOD PRESSURE MEDICATION [Concomitant]

REACTIONS (3)
  - Dysphonia [Unknown]
  - Dry throat [Unknown]
  - Nasopharyngitis [Unknown]
